FAERS Safety Report 9719211 (Version 1)
Quarter: 2013Q4

REPORT INFORMATION
  Report Type: Spontaneous
  Country: CL (occurrence: CL)
  Receive Date: 20131127
  Receipt Date: 20131127
  Transmission Date: 20140711
  Serious: Yes (Life-Threatening, Hospitalization, Other)
  Sender: FDA-Public Use
  Company Number: CL-009507513-1311CHL008991

PATIENT
  Age: 45 Year
  Sex: Female
  Weight: 70 kg

DRUGS (7)
  1. TEMODAL [Suspect]
     Indication: ASTROCYTOMA
     Dosage: 140 MG, QD
     Route: 048
     Dates: start: 20130923, end: 20131103
  2. TEMODAL [Suspect]
     Dosage: UNK
  3. DEXAMETHASONE [Concomitant]
     Dosage: 1 MG, QD
     Route: 048
  4. CIPROFLOXACIN [Concomitant]
     Dosage: EACH 12 HOURS DURING 5 DAYS
     Route: 048
  5. EUTIROX [Concomitant]
     Dosage: 88 MICROGRAM, QD
     Route: 048
  6. SUPRACALM [Concomitant]
     Dosage: 1 G, PRN
  7. SULFAMETHOXAZOLE (+) TRIMETHOPRIM [Concomitant]
     Dosage: 1 TABLET EACH 48 HOURS
     Route: 048

REACTIONS (4)
  - Agranulocytosis [Unknown]
  - Platelet transfusion [Unknown]
  - Bone marrow failure [Not Recovered/Not Resolved]
  - Thrombocytopenia [Not Recovered/Not Resolved]
